FAERS Safety Report 8111460 (Version 5)
Quarter: 2013Q3

REPORT INFORMATION
  Report Type: Report from Study
  Country: CA (occurrence: CA)
  Receive Date: 20110829
  Receipt Date: 20130819
  Transmission Date: 20140515
  Serious: Yes (Other)
  Sender: FDA-Public Use
  Company Number: PHHY2011CA73994

PATIENT
  Sex: Female

DRUGS (6)
  1. SANDOSTATIN [Suspect]
     Indication: SHORT-BOWEL SYNDROME
     Dosage: UNK
     Route: 058
  2. SANDOSTATIN LAR [Suspect]
     Indication: SHORT-BOWEL SYNDROME
     Dosage: 30 MG EVERY 3 WEEKS
     Route: 030
     Dates: start: 20041231
  3. PERCOCET [Concomitant]
  4. LOSEC [Concomitant]
  5. CELEBREX [Concomitant]
  6. B12 [Concomitant]

REACTIONS (4)
  - Vulval cancer stage I [Recovering/Resolving]
  - Generalised oedema [Unknown]
  - Hypoaesthesia [Unknown]
  - Local swelling [Unknown]
